FAERS Safety Report 13746136 (Version 1)
Quarter: 2017Q3

REPORT INFORMATION
  Report Type: Spontaneous
  Country: US (occurrence: US)
  Receive Date: 20170712
  Receipt Date: 20170712
  Transmission Date: 20171127
  Serious: Yes (Other)
  Sender: FDA-Public Use
  Company Number: None

PATIENT
  Age: 58 Year
  Weight: 90 kg

DRUGS (6)
  1. SYNTHEROID [Concomitant]
     Active Substance: DIETARY SUPPLEMENT
  2. ARIPIPRAZOLE. [Suspect]
     Active Substance: ARIPIPRAZOLE
     Indication: ADJUVANT THERAPY
     Dosage: ?          QUANTITY:1 TABLET(S);?
     Route: 048
  3. BUPROPION HCL [Concomitant]
     Active Substance: BUPROPION HYDROCHLORIDE
  4. VENLAFAXINE [Concomitant]
     Active Substance: VENLAFAXINE HYDROCHLORIDE
  5. CLONAZEPAM. [Concomitant]
     Active Substance: CLONAZEPAM
  6. ARIPIPRAZOLE. [Suspect]
     Active Substance: ARIPIPRAZOLE
     Indication: ANTIDEPRESSANT THERAPY
     Dosage: ?          QUANTITY:1 TABLET(S);?
     Route: 048

REACTIONS (7)
  - Obsessive-compulsive disorder [None]
  - Compulsive sexual behaviour [None]
  - Divorced [None]
  - Quality of life decreased [None]
  - Libido increased [None]
  - Hypersexuality [None]
  - Compulsive shopping [None]

NARRATIVE: CASE EVENT DATE: 20170701
